FAERS Safety Report 14149999 (Version 1)
Quarter: 2017Q4

REPORT INFORMATION
  Report Type: Spontaneous
  Country: US (occurrence: US)
  Receive Date: 20171101
  Receipt Date: 20171101
  Transmission Date: 20180321
  Serious: No
  Sender: FDA-Public Use
  Company Number: US-BAYER-2017-199510

PATIENT
  Age: 10 Year
  Sex: Female

DRUGS (3)
  1. CLARITIN [Suspect]
     Active Substance: LORATADINE
     Indication: VIRAL INFECTION
     Dosage: 1.5 DF, QD
     Route: 048
     Dates: start: 2017
  2. TUSSIN CF [Concomitant]
     Active Substance: DEXTROMETHORPHAN HYDROBROMIDE\GUAIFENESIN\PHENYLEPHRINE HYDROCHLORIDE
     Indication: VIRAL INFECTION
  3. CLARITIN [Suspect]
     Active Substance: LORATADINE
     Indication: VIRAL INFECTION
     Dosage: 1.5 DF, ONCE
     Route: 048
     Dates: start: 20171014, end: 20171014

REACTIONS (3)
  - Off label use [Unknown]
  - Incorrect dose administered [Unknown]
  - Inappropriate schedule of drug administration [Recovered/Resolved]

NARRATIVE: CASE EVENT DATE: 2017
